FAERS Safety Report 7956385-2 (Version None)
Quarter: 2011Q4

REPORT INFORMATION
  Report Type: 
  Country: None (occurrence: None)
  Receive Date: 20111205
  Receipt Date: 20111201
  Transmission Date: 20120403
  Serious: Yes (Hospitalization, Other)
  Sender: FDA-Public Use
  Company Number: US-PFIZER INC-2011293873

PATIENT
  Sex: Female
  Weight: 54.422 kg

DRUGS (3)
  1. LEVOTHYROXINE [Concomitant]
     Indication: THYROID DISORDER
     Dosage: UNK
  2. LIOTHYRONINE [Concomitant]
     Indication: THYROID DISORDER
     Dosage: UNK
  3. PRISTIQ [Suspect]
     Indication: DEPRESSION
     Dosage: 50 MG, 1X/DAY
     Route: 048
     Dates: start: 20091001

REACTIONS (4)
  - RESPIRATORY FAILURE [None]
  - COMA [None]
  - MEDICATION RESIDUE [None]
  - PRODUCT SOLUBILITY ABNORMAL [None]
